FAERS Safety Report 8308281-9 (Version None)
Quarter: 2012Q2

REPORT INFORMATION
  Report Type: 
  Country: None (occurrence: None)
  Receive Date: 20120424
  Receipt Date: 20120413
  Transmission Date: 20120825
  Serious: Yes (Other)
  Sender: FDA-Public Use
  Company Number: US-JNJFOC-20120400960

PATIENT
  Sex: Female
  Weight: 66.23 kg

DRUGS (11)
  1. SIMPONI [Suspect]
     Indication: RHEUMATOID ARTHRITIS
     Route: 058
     Dates: start: 20091213
  2. ASPIRIN [Concomitant]
     Indication: CARDIAC DISORDER
  3. LEFLUNOMIDE [Concomitant]
     Indication: RHEUMATOID ARTHRITIS
  4. ARIMIDEX [Concomitant]
     Indication: BREAST CANCER
  5. CLARINEX [Concomitant]
     Indication: MULTIPLE ALLERGIES
  6. TOPROL-XL [Concomitant]
     Indication: BLOOD PRESSURE
  7. CLARINEX [Concomitant]
     Indication: SEASONAL ALLERGY
  8. EPIPEN [Concomitant]
     Indication: FOOD ALLERGY
  9. ALL OTHER THERAPEUTIC AGENTS [Concomitant]
     Indication: ECZEMA
     Route: 061
  10. LEVOTHYROXINE SODIUM [Concomitant]
     Indication: THYROID DISORDER
  11. NORVASC [Concomitant]
     Indication: CARDIAC DISORDER

REACTIONS (3)
  - DEVICE MALFUNCTION [None]
  - SJOGREN'S SYNDROME [None]
  - MYOCARDIAL INFARCTION [None]
